FAERS Safety Report 15703387 (Version 1)
Quarter: 2018Q4

REPORT INFORMATION
  Report Type: Report from Study
  Country: US (occurrence: US)
  Receive Date: 20181210
  Receipt Date: 20181210
  Transmission Date: 20190205
  Serious: No
  Sender: FDA-Public Use
  Company Number: US-KYOWAKIRIN-2017BKK002994

PATIENT

DRUGS (2)
  1. GRANISETRON [Suspect]
     Active Substance: GRANISETRON
     Indication: NAUSEA
     Dosage: UNK,APPLY SINGLE PATCH 24 HOURS PRIOR TO CHEMO TREATMENT, LEAVE ON 7 DAYS
     Route: 062
     Dates: end: 201710
  2. GRANISETRON [Suspect]
     Active Substance: GRANISETRON
     Indication: VOMITING

REACTIONS (3)
  - Rash [Unknown]
  - Erythema [Unknown]
  - Dry skin [Unknown]
